FAERS Safety Report 24427856 (Version 1)
Quarter: 2024Q4

REPORT INFORMATION
  Report Type: Spontaneous
  Country: US (occurrence: US)
  Receive Date: 20241011
  Receipt Date: 20241011
  Transmission Date: 20250114
  Serious: No
  Sender: TEVA
  Company Number: US-TEVA-VS-3246879

PATIENT
  Age: 62 Year
  Sex: Female
  Weight: 70.3 kg

DRUGS (1)
  1. AUSTEDO [Suspect]
     Active Substance: DEUTETRABENAZINE
     Indication: Tardive dyskinesia
     Dosage: (6 MG +12 MG ) ONE 6 MG TABLET AND ONE 12 MG TABLET TOGETHER
     Route: 065
     Dates: start: 20240716, end: 202409

REACTIONS (2)
  - Dizziness [Recovered/Resolved]
  - Salivary hypersecretion [Recovered/Resolved]

NARRATIVE: CASE EVENT DATE: 20240101
